FAERS Safety Report 5145646-0 (Version None)
Quarter: 2006Q4

REPORT INFORMATION
  Report Type: 
  Country: None (occurrence: None)
  Receive Date: 20061031
  Receipt Date: 20061023
  Transmission Date: 20070319
  Serious: Yes (Other)
  Sender: FDA-Public Use
  Company Number: US-2006-031315

PATIENT
  Age: 25 Year
  Sex: Female
  Weight: 65.8 kg

DRUGS (1)
  1. MIRENA [Suspect]
     Dosage: 20 UG/DAY, CONT, INTRA-UTERINE
     Route: 015
     Dates: start: 20001201, end: 20051212

REACTIONS (3)
  - INFERTILITY FEMALE [None]
  - MENSTRUATION IRREGULAR [None]
  - MULTIPLE SCLEROSIS [None]
